FAERS Safety Report 12975475 (Version 2)
Quarter: 2016Q4

REPORT INFORMATION
  Report Type: Report from Study
  Country: US (occurrence: US)
  Receive Date: 20161125
  Receipt Date: 20161212
  Transmission Date: 20170207
  Serious: Yes (Death, Hospitalization, Other)
  Sender: FDA-Public Use
  Company Number: US-009507513-1611USA011336

PATIENT
  Age: 79 Year
  Sex: Male
  Weight: 75.28 kg

DRUGS (2)
  1. KEYTRUDA [Suspect]
     Active Substance: PEMBROLIZUMAB
     Indication: OESOPHAGEAL ADENOCARCINOMA
     Dosage: UNK, CYCLE 1
     Route: 042
     Dates: start: 20160627, end: 20160627
  2. KEYTRUDA [Suspect]
     Active Substance: PEMBROLIZUMAB
     Dosage: UNK, CYCLE 2
     Route: 042
     Dates: start: 20160715, end: 20160715

REACTIONS (6)
  - Malignant neoplasm progression [Unknown]
  - Death [Fatal]
  - Product use issue [Unknown]
  - Stent malfunction [Unknown]
  - Deep vein thrombosis [Unknown]
  - Acute kidney injury [Unknown]

NARRATIVE: CASE EVENT DATE: 2016
